FAERS Safety Report 15846730 (Version 2)
Quarter: 2019Q2

REPORT INFORMATION
  Report Type: Spontaneous
  Country: US (occurrence: US)
  Receive Date: 20190121
  Receipt Date: 20190409
  Transmission Date: 20190711
  Serious: Yes (Other)
  Sender: FDA-Public Use
  Company Number: US-009507513-1901USA005389

PATIENT
  Age: 23 Year

DRUGS (5)
  1. MEKINIST [Suspect]
     Active Substance: TRAMETINIB DIMETHYL SULFOXIDE
     Indication: GANGLIOGLIOMA
     Dosage: 2 MILLIGRAM, QD
     Route: 048
  2. TEMODAR [Suspect]
     Active Substance: TEMOZOLOMIDE
     Dosage: 75 MILLIGRAM/SQ. METER
     Dates: end: 20180330
  3. TEMODAR [Suspect]
     Active Substance: TEMOZOLOMIDE
     Dosage: 150-200MG/M2 D1-5 PER CYCLE WITH 28 CYCLE
  4. TEMODAR [Suspect]
     Active Substance: TEMOZOLOMIDE
     Dosage: UNK
     Dates: start: 20180903
  5. TAFINLAR [Suspect]
     Active Substance: DABRAFENIB MESYLATE
     Indication: GANGLIOGLIOMA
     Dosage: 2 BY MOUTH EVERY 12 HOURS
     Route: 048

REACTIONS (1)
  - Ganglioglioma [Unknown]
